FAERS Safety Report 8386346-3 (Version None)
Quarter: 2012Q2

REPORT INFORMATION
  Report Type: 
  Country: None (occurrence: None)
  Receive Date: 20120525
  Receipt Date: 20120521
  Transmission Date: 20120825
  Serious: Yes (Disabling, Other)
  Sender: FDA-Public Use
  Company Number: US-CELGENEUS-163-21880-12010416

PATIENT
  Sex: Male

DRUGS (7)
  1. CYMBALTA [Concomitant]
     Indication: DEPRESSION
     Dosage: 90 MILLIGRAM
     Route: 048
     Dates: start: 20100408
  2. POTASSIUM CHLORIDE [Concomitant]
     Dosage: 20 MILLIEQUIVALENTS
     Route: 048
     Dates: start: 20100603
  3. XANAX [Concomitant]
     Indication: ANXIETY
     Dosage: .5 MILLIGRAM
     Route: 048
     Dates: start: 20100408
  4. MS CONTIN [Concomitant]
     Indication: BACK PAIN
     Dosage: 15 MILLIGRAM
     Route: 048
  5. REVLIMID [Suspect]
     Indication: MULTIPLE MYELOMA
     Dosage: 10 MILLIGRAM
     Route: 048
     Dates: start: 20100913, end: 20111130
  6. REVLIMID [Suspect]
     Dosage: 5 MILLIGRAM
     Route: 048
     Dates: start: 20120111
  7. BACTRIM DS [Concomitant]
     Indication: IMMUNODEFICIENCY
     Route: 048
     Dates: start: 20100408

REACTIONS (3)
  - PANCYTOPENIA [None]
  - FATIGUE [None]
  - HYPOACUSIS [None]
